FAERS Safety Report 9729539 (Version 2)
Quarter: 2013Q4

REPORT INFORMATION
  Report Type: Spontaneous
  Country: US (occurrence: US)
  Receive Date: 20131204
  Receipt Date: 20131204
  Transmission Date: 20140711
  Serious: No
  Sender: FDA-Public Use
  Company Number: US-GILEAD-2009-0021143

PATIENT
  Sex: Male
  Weight: 126.1 kg

DRUGS (15)
  1. LETAIRIS [Suspect]
     Indication: PULMONARY ARTERIAL HYPERTENSION
     Route: 048
     Dates: start: 20090120
  2. COUMADIN [Concomitant]
  3. LANOXIN [Concomitant]
  4. CARDIZEM CD [Concomitant]
  5. DIURIL [Concomitant]
  6. ZOCOR [Concomitant]
  7. RAMIPRIL [Concomitant]
  8. BUMEX [Concomitant]
  9. ALLOPURINOL [Concomitant]
  10. PEPCID [Concomitant]
  11. MULTIVITAMIN [Concomitant]
  12. LANTUS [Concomitant]
  13. POTASSIUM CHLORIDE [Concomitant]
  14. ESTER-C [Concomitant]
  15. COQ10 [Concomitant]

REACTIONS (2)
  - Pruritus [Unknown]
  - Hypersensitivity [Unknown]
